FAERS Safety Report 7935872-7 (Version None)
Quarter: 2011Q4

REPORT INFORMATION
  Report Type: 
  Country: None (occurrence: None)
  Receive Date: 20111123
  Receipt Date: 20111116
  Transmission Date: 20120403
  Serious: Yes (Life-Threatening, Hospitalization, Other)
  Sender: FDA-Public Use
  Company Number: US-CELGENEUS-163-21880-11050977

PATIENT
  Sex: Male
  Weight: 89.177 kg

DRUGS (38)
  1. REVLIMID [Suspect]
     Indication: MULTIPLE MYELOMA
     Dosage: 25 MILLIGRAM
     Route: 048
     Dates: start: 20100501
  2. LASIX [Concomitant]
     Dosage: 20 MILLIGRAM
     Route: 048
  3. OXYCODONE HCL [Concomitant]
     Dosage: 5 MILLIGRAM
     Route: 048
  4. MELPHALAN HYDROCHLORIDE [Concomitant]
     Route: 065
     Dates: start: 20100423
  5. ASPIRIN [Concomitant]
     Dosage: 81 MILLIGRAM
     Route: 065
  6. KLOR-CON [Concomitant]
     Dosage: 20 MILLIEQUIVALENTS
     Route: 065
  7. KLOR-CON [Concomitant]
     Dosage: 20 MILLIEQUIVALENTS
     Route: 065
  8. MIRALAX [Concomitant]
     Dosage: 17 GRAM
     Route: 048
  9. SENNA [Concomitant]
     Dosage: 1 TABLET
     Route: 048
  10. TUCKS [Concomitant]
     Route: 065
  11. REVLIMID [Suspect]
     Dosage: 10 MILLIGRAM
     Route: 048
     Dates: start: 20110316, end: 20110413
  12. REVLIMID [Suspect]
     Dosage: 5 MILLIGRAM
     Route: 048
     Dates: start: 20110101
  13. MAGNESIUM OXIDE [Concomitant]
     Dosage: 400 MILLIGRAM
     Route: 048
  14. PREDNISONE TAB [Concomitant]
     Dosage: 5 MILLIGRAM
     Route: 048
     Dates: start: 20100625
  15. OXYCODONE HCL [Concomitant]
     Dosage: 6 MILLIGRAM
     Route: 065
  16. NEURONTIN [Concomitant]
     Dosage: 300 MILLIGRAM
     Route: 048
  17. PREDNISONE TAB [Concomitant]
     Dosage: 10 MILLIGRAM
     Route: 065
     Dates: start: 20100423
  18. COUMADIN [Concomitant]
     Indication: ATRIAL FIBRILLATION
     Dosage: 2.5 MILLIGRAM
     Route: 048
  19. KEFLEX [Concomitant]
     Dosage: 500 MILLIGRAM
     Route: 048
  20. COLACE [Concomitant]
     Dosage: 100 MILLIGRAM
     Route: 048
  21. ACYCLOVIR [Concomitant]
     Indication: PROPHYLAXIS
     Dosage: 800 MILLIGRAM
     Route: 065
     Dates: start: 20110124
  22. HALOPERIDOL [Concomitant]
     Dosage: 1 MILLIGRAM
     Route: 065
  23. VITAMIN B COMPLEX CAP [Concomitant]
     Route: 065
  24. METOPROLOL TARTRATE [Concomitant]
     Dosage: 50 MILLIGRAM
     Route: 065
  25. MELPHALAN HYDROCHLORIDE [Concomitant]
     Dosage: 14 MILLIGRAM
     Route: 048
     Dates: start: 20100625
  26. KEFLEX [Concomitant]
     Dosage: 500 MILLIGRAM
     Route: 048
  27. SENOKOT [Concomitant]
     Dosage: 8.6/50MG, 2 TABLETS
     Route: 048
  28. ALPHA-LIPOIC ACID [Concomitant]
     Dosage: 400 MILLIGRAM
     Route: 048
  29. PREPARATION H [Concomitant]
     Route: 065
  30. REVLIMID [Suspect]
     Dosage: 10 MILLIGRAM
     Route: 048
     Dates: start: 20110201
  31. CIPROFLOXACIN [Concomitant]
     Dosage: 500 MILLIGRAM
     Route: 048
     Dates: start: 20110124
  32. PYRIDOXINE HCL [Concomitant]
     Dosage: 100 MILLIGRAM
     Route: 048
  33. AREDIA [Concomitant]
     Route: 065
  34. ALLOPURINOL [Concomitant]
     Dosage: 300 MILLIGRAM
     Route: 065
  35. FOLIC ACID [Concomitant]
     Dosage: 400 MICROGRAM
     Route: 065
  36. PREVACID [Concomitant]
     Dosage: 30 MILLIGRAM
     Route: 048
  37. FOLIC ACID [Concomitant]
     Dosage: 1 GRAM
     Route: 065
  38. DIFLUCAN [Concomitant]
     Dosage: 200 MILLIGRAM
     Route: 048
     Dates: start: 20110124

REACTIONS (3)
  - MULTIPLE MYELOMA [None]
  - PANCYTOPENIA [None]
  - HAEMORRHOIDAL HAEMORRHAGE [None]
